FAERS Safety Report 15733236 (Version 1)
Quarter: 2018Q4

REPORT INFORMATION
  Report Type: Spontaneous
  Country: GB (occurrence: GB)
  Receive Date: 20181218
  Receipt Date: 20181218
  Transmission Date: 20190205
  Serious: Yes (Other)
  Sender: FDA-Public Use
  Company Number: GB-DEXPHARM-20180964

PATIENT
  Age: 32 Year
  Sex: Female
  Weight: 59 kg

DRUGS (3)
  1. DERMOVATE [Concomitant]
     Active Substance: CLOBETASOL
     Dosage: APPLY THINLY 1-2 TIMES A DAY
     Dates: start: 20181119
  2. OMEPRAZOLE. [Suspect]
     Active Substance: OMEPRAZOLE
     Dates: start: 20181119
  3. DIPROBASE [Concomitant]
     Active Substance: CHLOROCRESOL
     Dosage: APPLY THINLY 1-2 TIMES A DAY
     Dates: start: 20181119

REACTIONS (1)
  - Swelling face [Recovered/Resolved]

NARRATIVE: CASE EVENT DATE: 20181119
